FAERS Safety Report 6249877-8 (Version None)
Quarter: 2009Q2

REPORT INFORMATION
  Report Type: 
  Country: None (occurrence: None)
  Receive Date: 20090629
  Receipt Date: 20090617
  Transmission Date: 20091009
  Serious: Yes (Other)
  Sender: FDA-Public Use
  Company Number: KR-PFIZER INC-2009218929

PATIENT
  Age: 33 Year

DRUGS (1)
  1. ZELDOX [Suspect]
     Indication: BIPOLAR DISORDER
     Dosage: 40 MG, 2X/DAY
     Route: 048
     Dates: start: 20090501

REACTIONS (1)
  - OBSESSIVE-COMPULSIVE DISORDER [None]
